FAERS Safety Report 4978328-6 (Version None)
Quarter: 2006Q1

REPORT INFORMATION
  Report Type: 
  Country: None (occurrence: None)
  Receive Date: 20060222
  Receipt Date: 20051208
  Transmission Date: 20060701
  Serious: Yes (Hospitalization)
  Sender: FDA-Public Use
  Company Number: 2005133396

PATIENT
  Age: 56 Year
  Sex: Female
  Weight: 63 kg

DRUGS (7)
  1. FRAGMIN [Suspect]
     Indication: DEEP VEIN THROMBOSIS
     Dosage: 15000 I.U. (7500 I.U., 1 IN 12 HR), SUBCUTANEOUS
     Route: 058
     Dates: start: 20050917, end: 20050922
  2. FRAGMIN [Suspect]
     Indication: PULMONARY EMBOLISM
     Dosage: 15000 I.U. (7500 I.U., 1 IN 12 HR), SUBCUTANEOUS
     Route: 058
     Dates: start: 20050917, end: 20050922
  3. MORPHINE SULFATE [Concomitant]
  4. DOCUSATE (DOCUSATE) [Concomitant]
  5. NYSTATIN [Concomitant]
  6. PROMETHAZINE [Concomitant]
  7. SENNA (SENNA) [Concomitant]

REACTIONS (1)
  - RASH [None]
